FAERS Safety Report 4605056-9 (Version None)
Quarter: 2005Q1

REPORT INFORMATION
  Report Type: 
  Country: None (occurrence: None)
  Receive Date: 20050311
  Receipt Date: 20050228
  Transmission Date: 20050727
  Serious: Yes (Hospitalization, Disabling)
  Sender: FDA-Public Use
  Company Number: CH-BRISTOL-MYERS SQUIBB COMPANY-12884169

PATIENT
  Age: 40 Year
  Sex: Male

DRUGS (5)
  1. REYATAZ [Suspect]
     Indication: HIV INFECTION
     Route: 048
     Dates: start: 20040806, end: 20050223
  2. DIDANOSINE [Concomitant]
  3. STAVUDINE [Concomitant]
  4. ATOVAQUONE [Concomitant]
  5. PHENYTOIN SODIUM [Concomitant]

REACTIONS (2)
  - MOUTH ULCERATION [None]
  - WEIGHT DECREASED [None]
